FAERS Safety Report 12803771 (Version 3)
Quarter: 2019Q3

REPORT INFORMATION
  Report Type: Spontaneous
  Country: US (occurrence: US)
  Receive Date: 20161003
  Receipt Date: 20190801
  Transmission Date: 20191004
  Serious: Yes (Hospitalization, Congenital Anomaly, Other)
  Sender: FDA-Public Use
  Company Number: US-APOTEX-2014AP003744

PATIENT
  Age: 0 Day
  Sex: Male

DRUGS (5)
  1. PAXIL [Suspect]
     Active Substance: PAROXETINE HYDROCHLORIDE
     Indication: DEPRESSION
     Dosage: UNK
     Route: 064
     Dates: end: 2010
  2. PAXIL CR [Suspect]
     Active Substance: PAROXETINE HYDROCHLORIDE
     Indication: ANXIETY
  3. PAXIL [Suspect]
     Active Substance: PAROXETINE HYDROCHLORIDE
     Indication: AFFECTIVE DISORDER
  4. PAXIL [Suspect]
     Active Substance: PAROXETINE HYDROCHLORIDE
     Indication: SOCIAL ANXIETY DISORDER
  5. PAXIL CR [Suspect]
     Active Substance: PAROXETINE HYDROCHLORIDE
     Indication: DEPRESSION
     Dosage: UNK
     Route: 064

REACTIONS (25)
  - Carotid artery occlusion [Unknown]
  - Patent ductus arteriosus [Unknown]
  - Mitral valve incompetence [Unknown]
  - Anomalous pulmonary venous connection [Unknown]
  - Pulmonary haemorrhage [Recovered/Resolved]
  - Bronchiolitis [Unknown]
  - Chylothorax [Recovered/Resolved]
  - Autism spectrum disorder [Unknown]
  - Congenital chylothorax [Unknown]
  - Right ventricular hypertrophy [Unknown]
  - Neonatal hypoxia [Unknown]
  - Hyperbilirubinaemia [Unknown]
  - Cholestasis [Unknown]
  - Dyskinesia [Unknown]
  - Fallot^s tetralogy [Unknown]
  - Anomalous pulmonary venous connection [Unknown]
  - Tricuspid valve incompetence [Unknown]
  - Carotid artery thrombosis [Unknown]
  - Coagulopathy [Unknown]
  - Foetal exposure during pregnancy [Unknown]
  - Pulmonary hypertension [Unknown]
  - Palpitations [Unknown]
  - Venous thrombosis [Unknown]
  - Vein disorder [Unknown]
  - Cyanosis [Unknown]

NARRATIVE: CASE EVENT DATE: 20031203
